FAERS Safety Report 9179473 (Version 1)
Quarter: 2013Q1

REPORT INFORMATION
  Report Type: Spontaneous
  Country: US (occurrence: US)
  Receive Date: 20130321
  Receipt Date: 20130321
  Transmission Date: 20140127
  Serious: No
  Sender: FDA-Public Use
  Company Number: US-ASTRAZENECA-2013SE11679

PATIENT
  Age: 85 Year
  Sex: Female
  Weight: 46.3 kg

DRUGS (11)
  1. NEXIUM [Suspect]
     Indication: GASTROOESOPHAGEAL REFLUX DISEASE
     Route: 048
     Dates: start: 2013
  2. NEXIUM [Suspect]
     Indication: GASTRIC DISORDER
     Route: 048
     Dates: start: 2013
  3. MULTIVITAMIN MINERAL AND PROBIOTICS ACTIVE PLUS 50 [Concomitant]
  4. MULTIVITAMIN [Concomitant]
  5. CALCIUM [Concomitant]
  6. B12 [Concomitant]
     Indication: ANAEMIA
  7. IRON FERRIS GLUCONATE [Concomitant]
     Indication: ANAEMIA
  8. PROBIOTICS [Concomitant]
     Indication: PROPHYLAXIS
  9. PROBIOTICS [Concomitant]
     Indication: PROPHYLAXIS
  10. OMEGA 3 [Concomitant]
  11. FLAX SEED GROUND UP ON OATMEAL [Concomitant]

REACTIONS (4)
  - Gastroenteritis viral [Unknown]
  - Sinus disorder [Unknown]
  - Weight decreased [Unknown]
  - Hyperchlorhydria [Unknown]
